FAERS Safety Report 7223397-6 (Version None)
Quarter: 2011Q1

REPORT INFORMATION
  Report Type: 
  Country: None (occurrence: None)
  Receive Date: 20110112
  Receipt Date: 20100610
  Transmission Date: 20110831
  Serious: No
  Sender: FDA-Public Use
  Company Number: US-ALLERGAN-1007586US

PATIENT
  Age: 60 Year
  Sex: Female

DRUGS (3)
  1. FISH OIL [Concomitant]
  2. MULTI-VIT [Concomitant]
  3. RESTASIS [Suspect]
     Indication: DRY EYE
     Dosage: UNK

REACTIONS (4)
  - FEELING HOT [None]
  - ERYTHEMA [None]
  - TACHYCARDIA [None]
  - HEART RATE IRREGULAR [None]
